FAERS Safety Report 22028750 (Version 1)
Quarter: 2023Q1

REPORT INFORMATION
  Report Type: Spontaneous
  Country: US (occurrence: None)
  Receive Date: 20230220
  Receipt Date: 20230220
  Transmission Date: 20230418
  Serious: Yes (Hospitalization)
  Sender: FDA-Public Use
  Company Number: None

PATIENT
  Sex: Female
  Weight: 59.42 kg

DRUGS (11)
  1. SANCUSO [Suspect]
     Active Substance: GRANISETRON
     Indication: Myelodysplastic syndrome
     Dosage: 1     3.1 MG PATCH Q 7 DAUS TRANSDERMAL
     Route: 062
  2. CALCIUM [Concomitant]
     Active Substance: CALCIUM
  3. CHOLECALCIFEROL [Concomitant]
     Active Substance: CHOLECALCIFEROL
  4. DECITABINE [Concomitant]
  5. FLONASE ALLERGY RELIEF [Concomitant]
  6. FOLIC ACID [Concomitant]
  7. MULTIVITAMIN [Concomitant]
  8. PROTONIX [Concomitant]
  9. TYLENOL [Concomitant]
  10. VITAMIN D3 [Concomitant]
  11. ZOFRAN ODT [Concomitant]

REACTIONS (1)
  - Hospitalisation [None]
